FAERS Safety Report 4896228-7 (Version None)
Quarter: 2006Q1

REPORT INFORMATION
  Report Type: 
  Country: None (occurrence: None)
  Receive Date: 20060126
  Receipt Date: 20060113
  Transmission Date: 20060701
  Serious: Yes (Other)
  Sender: FDA-Public Use
  Company Number: 2006008754

PATIENT
  Age: 65 Year
  Sex: Female

DRUGS (1)
  1. NEURONTIN [Suspect]
     Indication: NEURALGIA
     Dosage: 300 OR 400, THREE OR FOUR TIMES (DAILY)

REACTIONS (6)
  - BLOOD CHOLESTEROL INCREASED [None]
  - DRUG TOLERANCE [None]
  - EMOTIONAL DISORDER [None]
  - HYPERTENSION [None]
  - OSTEOPOROSIS [None]
  - TREATMENT NONCOMPLIANCE [None]
